FAERS Safety Report 7462757-5 (Version None)
Quarter: 2011Q2

REPORT INFORMATION
  Report Type: 
  Country: None (occurrence: None)
  Receive Date: 20110506
  Receipt Date: 20110427
  Transmission Date: 20111010
  Serious: Yes (Death, Disabling, Other)
  Sender: FDA-Public Use
  Company Number: US-CELGENEUS-163-21880-11021638

PATIENT
  Sex: Female
  Weight: 48.1 kg

DRUGS (21)
  1. OXYCODONE [Concomitant]
     Indication: PAIN
     Dosage: 15 MILLIGRAM
     Route: 065
  2. GABAPENTIN [Concomitant]
     Dosage: 100 MILLIGRAM
     Route: 065
  3. OMEPRAZOLE [Concomitant]
     Dosage: 20 MILLIGRAM
     Route: 065
  4. ASPIRIN [Concomitant]
     Route: 065
  5. TRAZODONE [Concomitant]
     Dosage: 100 MILLIGRAM
     Route: 065
  6. MIRALAX [Concomitant]
     Route: 065
  7. MUCINEX DM [Concomitant]
     Route: 065
  8. LOVASTATIN [Concomitant]
     Dosage: 20 MILLIGRAM
     Route: 065
  9. DOCUSOFT [Concomitant]
     Route: 065
  10. DECADRON [Concomitant]
     Indication: MULTIPLE MYELOMA
     Dosage: 40 MILLIGRAM
     Route: 065
  11. IMIPRAMINE [Concomitant]
     Dosage: 25 MILLIGRAM
     Route: 065
  12. FORADIL [Concomitant]
     Dosage: 1 CAPSULE
     Route: 055
  13. CALCIUM [Concomitant]
     Dosage: 1
     Route: 065
  14. CLARITIN-D [Concomitant]
     Route: 065
  15. AREDIA [Concomitant]
     Route: 065
  16. FENTANYL [Concomitant]
     Indication: PAIN
     Dosage: 50 MILLIGRAM
     Route: 065
  17. COMVIBENT [Concomitant]
     Dosage: 2PUFFS
     Route: 055
  18. MULTI-VITAMIN [Concomitant]
     Route: 065
  19. VITAMIN D [Concomitant]
     Dosage: 1
     Route: 065
  20. METAMUCIL-2 [Concomitant]
     Route: 065
  21. REVLIMID [Suspect]
     Indication: MULTIPLE MYELOMA
     Dosage: 10 MILLIGRAM
     Route: 048
     Dates: start: 20100801, end: 20110101

REACTIONS (6)
  - PNEUMONIA [None]
  - CARDIAC FAILURE CONGESTIVE [None]
  - DRUG INEFFECTIVE [None]
  - MULTIPLE MYELOMA [None]
  - HYPERCALCAEMIA [None]
  - CHRONIC OBSTRUCTIVE PULMONARY DISEASE [None]
